FAERS Safety Report 10206262 (Version 1)
Quarter: 2014Q2

REPORT INFORMATION
  Report Type: Spontaneous
  Country: GB (occurrence: GB)
  Receive Date: 20140530
  Receipt Date: 20140530
  Transmission Date: 20141212
  Serious: Yes (Other)
  Sender: FDA-Public Use
  Company Number: GB-JNJFOC-20140514442

PATIENT
  Age: 66 Year
  Sex: Male
  Weight: 91 kg

DRUGS (7)
  1. XARELTO [Suspect]
     Indication: CEREBROVASCULAR ACCIDENT PROPHYLAXIS
     Route: 048
     Dates: start: 20130607
  2. XARELTO [Suspect]
     Indication: ATRIAL FIBRILLATION
     Route: 048
     Dates: start: 20130607
  3. ATORVASTATIN [Concomitant]
     Route: 065
  4. BISOPROLOL [Concomitant]
     Route: 065
  5. MYCOPHENOLATE MOFETIL [Concomitant]
     Route: 065
  6. PROGRAF [Concomitant]
     Route: 065
  7. RAMIPRIL [Concomitant]
     Route: 065

REACTIONS (1)
  - Renal impairment [Recovered/Resolved]
